FAERS Safety Report 16642293 (Version 1)
Quarter: 2019Q3

REPORT INFORMATION
  Report Type: Spontaneous
  Country: US (occurrence: US)
  Receive Date: 20190727
  Receipt Date: 20190727
  Transmission Date: 20191004
  Serious: No
  Sender: FDA-Public Use
  Company Number: None

PATIENT
  Age: 44 Year
  Sex: Female
  Weight: 49.5 kg

DRUGS (1)
  1. KLONOPIN [Suspect]
     Active Substance: CLONAZEPAM
     Indication: ANXIETY
     Route: 048
     Dates: start: 20040101, end: 20190219

REACTIONS (12)
  - Ear infection [None]
  - Depersonalisation/derealisation disorder [None]
  - Derealisation [None]
  - Hallucination [None]
  - Tension headache [None]
  - Kidney infection [None]
  - Paranoia [None]
  - Drug withdrawal syndrome [None]
  - Depression [None]
  - Blood sodium decreased [None]
  - Dyspnoea [None]
  - Spinal pain [None]

NARRATIVE: CASE EVENT DATE: 20190219
